FAERS Safety Report 6935829-9 (Version None)
Quarter: 2010Q3

REPORT INFORMATION
  Report Type: 
  Country: None (occurrence: None)
  Receive Date: 20100823
  Receipt Date: 20100811
  Transmission Date: 20110219
  Serious: Yes (Other)
  Sender: FDA-Public Use
  Company Number: PHHY2010NO53101

PATIENT
  Sex: Female

DRUGS (2)
  1. CARBAMAZEPINE [Suspect]
  2. ENOXAPARIN SODIUM [Suspect]
     Dosage: 40 MG, QD

REACTIONS (3)
  - ABORTION INDUCED [None]
  - CARDIAC VALVE REPLACEMENT COMPLICATION [None]
  - DRUG EXPOSURE DURING PREGNANCY [None]
